FAERS Safety Report 10794146 (Version 1)
Quarter: 2015Q1

REPORT INFORMATION
  Report Type: Spontaneous
  Country: FR (occurrence: FR)
  Receive Date: 20150213
  Receipt Date: 20150213
  Transmission Date: 20150721
  Serious: Yes (Hospitalization)
  Sender: FDA-Public Use
  Company Number: FR-PFIZER INC-2015054476

PATIENT
  Age: 72 Year
  Sex: Male

DRUGS (2)
  1. PERINDOPRIL [Suspect]
     Active Substance: PERINDOPRIL
     Dosage: 50 MG (5MG X 10), SINGLE
     Route: 048
     Dates: start: 20150119, end: 20150119
  2. XANAX [Suspect]
     Active Substance: ALPRAZOLAM
     Dosage: 2.50 MG (0.50 MG X 5), SINGLE
     Route: 048
     Dates: start: 20150119, end: 20150119

REACTIONS (2)
  - Altered state of consciousness [Recovered/Resolved]
  - Hypotension [Recovered/Resolved]

NARRATIVE: CASE EVENT DATE: 20150119
